FAERS Safety Report 7307974-X (Version None)
Quarter: 2011Q1

REPORT INFORMATION
  Report Type: 
  Country: None (occurrence: None)
  Receive Date: 20110223
  Receipt Date: 20110215
  Transmission Date: 20110831
  Serious: Yes (Death)
  Sender: FDA-Public Use
  Company Number: US-BAYER-2011-006014

PATIENT
  Sex: Female

DRUGS (9)
  1. OXYCODONE [Concomitant]
     Dosage: 5 MG, UNK
  2. ACTOS [Concomitant]
     Dosage: 15 MG, UNK
  3. LASIX [Concomitant]
     Dosage: 20 MG, UNK
  4. LEVOTHYROXINE SODIUM [Concomitant]
     Dosage: 25 ?G, UNK
  5. NEXAVAR [Suspect]
     Indication: THYROID CANCER
     Dosage: FIRST DELIVERED 30-DEC-2010
     Route: 048
  6. SENOKOT [Concomitant]
     Dosage: 8.6 MG, UNK
  7. SPIRIVA [Concomitant]
     Dosage: HANDIHLR
  8. VICODIN [Concomitant]
     Dosage: 5-500 MG
  9. ADVAIR HFA [Concomitant]
     Dosage: AEROSOL 45/21

REACTIONS (1)
  - DEATH [None]
